FAERS Safety Report 5752923-9 (Version None)
Quarter: 2008Q2

REPORT INFORMATION
  Report Type: 
  Country: None (occurrence: None)
  Receive Date: 20080529
  Receipt Date: 20080522
  Transmission Date: 20081010
  Serious: Yes (Hospitalization)
  Sender: FDA-Public Use
  Company Number: GB-ABBOTT-08P-167-0453277-00

PATIENT
  Sex: Female

DRUGS (4)
  1. VALPROIC ACID [Suspect]
     Indication: EPILEPSY
  2. VALPROIC ACID [Suspect]
     Dates: start: 19981001
  3. VALPROIC ACID [Suspect]
     Dosage: 2500 MG, DAILY
     Dates: start: 20050215
  4. FOLIC ACID [Concomitant]
     Indication: DRUG USE FOR UNKNOWN INDICATION
     Dosage: 5 MG, DAILY
     Route: 048
     Dates: start: 20041213

REACTIONS (3)
  - EPILEPSY [None]
  - INFERTILITY [None]
  - PROTEINURIA [None]
